FAERS Safety Report 9799485 (Version 2)
Quarter: 2014Q1

REPORT INFORMATION
  Report Type: Spontaneous
  Country: US (occurrence: US)
  Receive Date: 20140106
  Receipt Date: 20140122
  Transmission Date: 20141002
  Serious: No
  Sender: FDA-Public Use
  Company Number: US-GILEAD-2014-0091287

PATIENT
  Age: 42 Year
  Sex: Male
  Weight: 106.8 kg

DRUGS (4)
  1. ATRIPLA [Suspect]
     Indication: HIV INFECTION
     Dosage: UNK
     Route: 065
     Dates: end: 201105
  2. ATRIPLA [Suspect]
     Indication: ACQUIRED IMMUNODEFICIENCY SYNDROME
     Dosage: 1100 MG, UNK
     Route: 065
     Dates: start: 20131126, end: 20140103
  3. ACYCLOVIR                          /00587301/ [Concomitant]
     Indication: HERPES SIMPLEX
  4. TRAZODONE [Concomitant]
     Indication: SLEEP DISORDER

REACTIONS (3)
  - Drug resistance [Unknown]
  - Feeling abnormal [Not Recovered/Not Resolved]
  - Abnormal dreams [Not Recovered/Not Resolved]
